FAERS Safety Report 8286351-1 (Version None)
Quarter: 2012Q2

REPORT INFORMATION
  Report Type: 
  Country: None (occurrence: None)
  Receive Date: 20120411
  Receipt Date: 20120411
  Transmission Date: 20120825
  Serious: Yes (Life-Threatening, Hospitalization)
  Sender: FDA-Public Use
  Company Number: None

PATIENT
  Age: 57 Year
  Sex: Female
  Weight: 99.7913 kg

DRUGS (2)
  1. VIIBRYD [Suspect]
     Indication: BIPOLAR I DISORDER
     Dosage: 10 MG 1X DAY 1ST WEEK ; 20 MG 1X DAY 2ND WEEK
     Dates: start: 20120101
  2. VIIBRYD [Suspect]
     Indication: DEPRESSION
     Dosage: 10 MG 1X DAY 1ST WEEK ; 20 MG 1X DAY 2ND WEEK
     Dates: start: 20120101

REACTIONS (4)
  - PARANOIA [None]
  - SUICIDE ATTEMPT [None]
  - EXCESSIVE SEXUAL FANTASIES [None]
  - FOOD CRAVING [None]
